FAERS Safety Report 5081827-2 (Version None)
Quarter: 2006Q3

REPORT INFORMATION
  Report Type: 
  Country: None (occurrence: None)
  Receive Date: 20060816
  Receipt Date: 20060627
  Transmission Date: 20061208
  Serious: Yes (Hospitalization)
  Sender: FDA-Public Use
  Company Number: DE-SANOFI-SYNTHELABO-A04200600659

PATIENT
  Sex: Female
  Weight: 53 kg

DRUGS (7)
  1. FLUOROURACIL [Suspect]
     Indication: COLON CANCER
     Route: 041
     Dates: start: 20060523, end: 20060524
  2. ELOXATIN [Suspect]
     Indication: COLON CANCER
     Route: 041
     Dates: start: 20060523, end: 20060523
  3. FOLINIC ACID [Suspect]
     Indication: COLON CANCER
     Route: 041
     Dates: start: 20060523, end: 20060524
  4. CALCIUM GLUCONATE [Concomitant]
     Indication: PROPHYLAXIS
     Dosage: 1000 MG
     Route: 042
     Dates: start: 20060523
  5. MG [Concomitant]
     Indication: PROPHYLAXIS
     Dosage: 1000 MG
     Route: 042
     Dates: start: 20060523
  6. DEXAMETHASONE [Concomitant]
     Indication: NAUSEA
     Dosage: 20 MG
     Route: 042
     Dates: start: 20060523
  7. KEVATRIL [Concomitant]
     Indication: NAUSEA
     Dosage: 3 MG
     Route: 042
     Dates: start: 20060523

REACTIONS (1)
  - MUSCLE SPASMS [None]
